FAERS Safety Report 4951752-3 (Version None)
Quarter: 2006Q1

REPORT INFORMATION
  Report Type: 
  Country: None (occurrence: None)
  Receive Date: 20060322
  Receipt Date: 20060322
  Transmission Date: 20060701
  Serious: Yes (Other)
  Sender: FDA-Public Use
  Company Number: None

PATIENT
  Sex: Female
  Weight: 72.5755 kg

DRUGS (2)
  1. OXALIPLATIN [Suspect]
     Indication: BREAST CANCER METASTATIC
     Dosage: 85 MG /M2 DAYS 1 AND 15 IV DRIP
     Route: 041
     Dates: start: 20060120, end: 20060303
  2. CAPECITABINE [Suspect]
     Dosage: 1500 MG/M2 BID DAYS 1-7/15-21 PO
     Route: 048

REACTIONS (4)
  - HERPES ZOSTER [None]
  - INFECTION [None]
  - NERVOUS SYSTEM DISORDER [None]
  - NEUTROPHIL COUNT ABNORMAL [None]
